FAERS Safety Report 10264670 (Version 1)
Quarter: 2014Q2

REPORT INFORMATION
  Report Type: Spontaneous
  Country: US (occurrence: None)
  Receive Date: 20140624
  Receipt Date: 20140624
  Transmission Date: 20141212
  Serious: Yes (Life-Threatening, Disabling, Other)
  Sender: FDA-Public Use
  Company Number: 2397737

PATIENT
  Age: 30 Year
  Sex: Female

DRUGS (4)
  1. MAGNESIUM SULFATE [Suspect]
     Indication: HYPERTENSION
     Dosage: 40G/1000ML; TOTAL OF 4 AMPS; ADMINISTERED AT 50ML/HR:2G/HR
     Route: 041
     Dates: start: 20140603, end: 20140603
  2. MAGNESIUM SULFATE [Suspect]
     Indication: VISUAL IMPAIRMENT
     Dosage: 40G/1000ML; TOTAL OF 4 AMPS; ADMINISTERED AT 50ML/HR:2G/HR
     Route: 041
     Dates: start: 20140603, end: 20140603
  3. MAGNESIUM SULFATE [Suspect]
     Indication: HYPERTENSION
     Dosage: 40G/1000ML; TOTAL OF 4 AMPS; ADMINISTERED AT 50ML/HR:2G/HR
     Route: 041
     Dates: start: 20140603, end: 20140603
  4. MAGNESIUM SULFATE [Suspect]
     Dosage: 40G/1000ML; TOTAL OF 4 AMPS; ADMINISTERED AT 50ML/HR:2G/HR
     Route: 041
     Dates: start: 20140603, end: 20140603

REACTIONS (7)
  - Respiratory distress [None]
  - Feeling hot [None]
  - Respiratory arrest [None]
  - Cardiac arrest [None]
  - Amnesia [None]
  - Retinal detachment [None]
  - Device malfunction [None]
